FAERS Safety Report 5910048-3 (Version None)
Quarter: 2008Q4

REPORT INFORMATION
  Report Type: 
  Country: None (occurrence: None)
  Receive Date: 20081007
  Receipt Date: 20071119
  Transmission Date: 20090506
  Serious: No
  Sender: FDA-Public Use
  Company Number: US-ASTRAZENECA-2007UW19798

PATIENT
  Age: 57 Year
  Sex: Female
  Weight: 94.4 kg

DRUGS (9)
  1. ARIMIDEX [Suspect]
     Indication: BREAST CANCER
     Route: 048
     Dates: start: 20040101
  2. CALCIUM [Concomitant]
  3. VITAMINS [Concomitant]
  4. BENACORT [Concomitant]
  5. HYDROCORTISONE [Concomitant]
  6. VITAMIN D [Concomitant]
  7. LIPITOR [Concomitant]
  8. PREVACID [Concomitant]
  9. DARVOCET [Concomitant]

REACTIONS (11)
  - ASTHENIA [None]
  - BACK PAIN [None]
  - BONE DENSITY DECREASED [None]
  - COUGH [None]
  - DYSPAREUNIA [None]
  - FATIGUE [None]
  - HOT FLUSH [None]
  - LIBIDO DECREASED [None]
  - LYMPHOEDEMA [None]
  - VAGINAL HAEMORRHAGE [None]
  - VULVOVAGINAL DRYNESS [None]
